FAERS Safety Report 11005400 (Version 1)
Quarter: 2015Q2

REPORT INFORMATION
  Report Type: Spontaneous
  Country: PL (occurrence: PL)
  Receive Date: 20150409
  Receipt Date: 20150409
  Transmission Date: 20150821
  Serious: Yes (Life-Threatening, Hospitalization)
  Sender: FDA-Public Use
  Company Number: PL-TEVA-552467ISR

PATIENT
  Age: 61 Year
  Sex: Male

DRUGS (3)
  1. CLOPIDOGREL [Suspect]
     Active Substance: CLOPIDOGREL BISULFATE
  2. UNFRACTIONED HEPARIN [Concomitant]
     Route: 040
  3. ACETYLSALICYLIC ACID [Suspect]
     Active Substance: ASPIRIN

REACTIONS (3)
  - Cardiac arrest [Recovered/Resolved]
  - Anaemia [Unknown]
  - Haematoma [Unknown]
